FAERS Safety Report 7415611-9 (Version None)
Quarter: 2011Q2

REPORT INFORMATION
  Report Type: 
  Country: None (occurrence: None)
  Receive Date: 20110414
  Receipt Date: 20110331
  Transmission Date: 20111010
  Serious: Yes (Death)
  Sender: FDA-Public Use
  Company Number: IT-CELGENEUS-083-21880-11031558

PATIENT
  Sex: Male
  Weight: 62.5 kg

DRUGS (6)
  1. CEFTAZIDIME [Concomitant]
     Indication: INFECTION
     Dosage: 3 GRAM
     Route: 065
     Dates: start: 20101104, end: 20101202
  2. TARGOCID [Concomitant]
     Indication: INFECTION
     Route: 065
     Dates: start: 20101104, end: 20101202
  3. ZANTAC [Concomitant]
     Indication: PROPHYLAXIS
     Dosage: 300 MILLIGRAM
     Route: 065
     Dates: start: 20101129, end: 20101202
  4. REVLIMID [Suspect]
     Dosage: 10 MILLIGRAM
     Route: 048
     Dates: start: 20101112, end: 20101202
  5. CYTARABINE [Suspect]
     Dosage: 20 MILLIGRAM
     Route: 058
     Dates: start: 20101112, end: 20101125
  6. URBASON [Concomitant]
     Indication: PROMOTION OF PERIPHERAL CIRCULATION
     Route: 065
     Dates: start: 20101104, end: 20101202

REACTIONS (2)
  - NO THERAPEUTIC RESPONSE [None]
  - ACUTE MYELOID LEUKAEMIA [None]
